FAERS Safety Report 6171619-5 (Version None)
Quarter: 2009Q2

REPORT INFORMATION
  Report Type: 
  Country: None (occurrence: None)
  Receive Date: 20090429
  Receipt Date: 20090420
  Transmission Date: 20091009
  Serious: Yes (Other)
  Sender: FDA-Public Use
  Company Number: JP-AVENTIS-200910738JP

PATIENT
  Age: 51 Year
  Sex: Female
  Weight: 50 kg

DRUGS (8)
  1. CLEXANE [Suspect]
     Indication: HIP ARTHROPLASTY
     Route: 058
     Dates: start: 20090304, end: 20090309
  2. CLEXANE [Suspect]
     Indication: THROMBOSIS PROPHYLAXIS
     Route: 058
     Dates: start: 20090304, end: 20090309
  3. PANSPORIN [Concomitant]
     Indication: INFECTION PROPHYLAXIS
     Dates: start: 20090303, end: 20090307
  4. AMOLIN                             /00249602/ [Concomitant]
     Indication: INFECTION PROPHYLAXIS
     Route: 048
     Dates: start: 20090308, end: 20090314
  5. LOXONIN                            /00890701/ [Concomitant]
     Indication: PAIN
     Route: 048
     Dates: start: 20090304, end: 20090310
  6. IRZAIM [Concomitant]
     Indication: PAIN
     Route: 048
     Dates: start: 20090304, end: 20090310
  7. MUCOSTA [Concomitant]
     Indication: GASTRITIS PROPHYLAXIS
     Route: 048
     Dates: start: 20090304, end: 20090319
  8. FERROMIA                           /00023516/ [Concomitant]
     Route: 048
     Dates: start: 20090304, end: 20090407

REACTIONS (5)
  - ANOREXIA [None]
  - HEPATIC FUNCTION ABNORMAL [None]
  - HEPATOCELLULAR INJURY [None]
  - JAUNDICE [None]
  - NAUSEA [None]
